FAERS Safety Report 20040744 (Version 1)
Quarter: 2021Q4

REPORT INFORMATION
  Report Type: Spontaneous
  Country: US (occurrence: None)
  Receive Date: 20211108
  Receipt Date: 20211108
  Transmission Date: 20220303
  Serious: No
  Sender: FDA-Public Use
  Company Number: None

PATIENT
  Sex: Female

DRUGS (1)
  1. NUCALA [Suspect]
     Active Substance: MEPOLIZUMAB
     Indication: Pulmonary eosinophilia
     Dosage: FREQUENCY : MONTHLY;?
     Route: 058
     Dates: start: 20160819

REACTIONS (4)
  - Asthma [None]
  - Nasopharyngitis [None]
  - Respiratory disorder [None]
  - Condition aggravated [None]
